FAERS Safety Report 14125874 (Version 1)
Quarter: 2017Q4

REPORT INFORMATION
  Report Type: Spontaneous
  Country: US (occurrence: US)
  Receive Date: 20171025
  Receipt Date: 20171025
  Transmission Date: 20180321
  Serious: No
  Sender: FDA-Public Use
  Company Number: US-BAYER-2017-204489

PATIENT
  Age: 22 Year
  Sex: Male
  Weight: 203 kg

DRUGS (1)
  1. ALEVE [Suspect]
     Active Substance: NAPROXEN SODIUM
     Indication: HEADACHE
     Dosage: 2 CAPLETS EVERY 6 HOURS
     Route: 048
     Dates: start: 201710

REACTIONS (2)
  - Circumstance or information capable of leading to medication error [None]
  - Drug ineffective [Unknown]
